FAERS Safety Report 4883197-9 (Version None)
Quarter: 2006Q1

REPORT INFORMATION
  Report Type: 
  Country: None (occurrence: None)
  Receive Date: 20060118
  Receipt Date: 20060103
  Transmission Date: 20060701
  Serious: Yes (Death)
  Sender: FDA-Public Use
  Company Number: FR-JNJFOC-20060100954

PATIENT
  Age: 45 Year
  Sex: Male
  Weight: 88 kg

DRUGS (7)
  1. RISPERDAL [Suspect]
     Route: 048
  2. NORSET [Suspect]
     Route: 048
  3. MEPRONIZINE [Suspect]
     Route: 048
  4. MEPRONIZINE [Suspect]
     Route: 048
  5. TERCIAN [Suspect]
     Route: 048
  6. ANAFRANIL [Suspect]
     Route: 048
  7. NORDAZEPAM [Suspect]
     Indication: ANXIETY
     Route: 048

REACTIONS (3)
  - ASPHYXIA [None]
  - COMPLETED SUICIDE [None]
  - MULTIPLE DRUG OVERDOSE INTENTIONAL [None]
